FAERS Safety Report 10133212 (Version 1)
Quarter: 2014Q2

REPORT INFORMATION
  Report Type: Spontaneous
  Country: US (occurrence: US)
  Receive Date: 20140428
  Receipt Date: 20140428
  Transmission Date: 20141212
  Serious: Yes (Death, Other)
  Sender: FDA-Public Use
  Company Number: US-TEVA-478155USA

PATIENT
  Age: 70 Year
  Sex: Male

DRUGS (1)
  1. TEMOZOLOMIDE [Suspect]
     Indication: BRAIN NEOPLASM MALIGNANT
     Dosage: STRENGTH 180 MG, 100 MG AND 5 MG; DAILY FOR FIVE DAYS EVERY 28 DAYS
     Dates: start: 20131213, end: 20140321

REACTIONS (1)
  - Death [Fatal]
